FAERS Safety Report 23040950 (Version 5)
Quarter: 2023Q4

REPORT INFORMATION
  Report Type: Other
  Country: CA (occurrence: None)
  Receive Date: 20231006
  Receipt Date: 20231206
  Transmission Date: 20240109
  Serious: Yes (Other)
  Sender: FDA-Public Use
  Company Number: CA-ROCHE-2993902

PATIENT
  Sex: Female

DRUGS (1)
  1. OCREVUS [Suspect]
     Active Substance: OCRELIZUMAB
     Indication: Relapsing-remitting multiple sclerosis
     Dosage: MORE DOSAGE INFORMATION IS 300 MG AT DAY 0 AND 14, THEN 600 MG EVERY 6 MONTH; REPEAT: 600 MG EVERY 9
     Route: 042
     Dates: start: 20190905

REACTIONS (4)
  - Bladder disorder [Not Recovered/Not Resolved]
  - Postoperative wound infection [Unknown]
  - Dysuria [Not Recovered/Not Resolved]
  - Off label use [Unknown]
